FAERS Safety Report 7385201-5 (Version None)
Quarter: 2011Q1

REPORT INFORMATION
  Report Type: 
  Country: None (occurrence: None)
  Receive Date: 20110330
  Receipt Date: 20110103
  Transmission Date: 20110831
  Serious: No
  Sender: FDA-Public Use
  Company Number: US-MYLANLABS-2010S1023663

PATIENT
  Age: 70 Year
  Sex: Female

DRUGS (5)
  1. NIFEDIPINE [Suspect]
     Indication: BLOOD PRESSURE INCREASED
     Route: 048
     Dates: start: 20101221, end: 20110106
  2. BACTRIM [Suspect]
     Indication: URINARY TRACT INFECTION
     Dates: start: 20101219, end: 20101201
  3. ZANTAC [Concomitant]
  4. ACETAMINOPHEN [Concomitant]
  5. TUMS [Concomitant]

REACTIONS (11)
  - ASTHENIA [None]
  - HAEMORRHOIDS [None]
  - ABDOMINAL DISTENSION [None]
  - DIZZINESS [None]
  - TREMOR [None]
  - DYSGEUSIA [None]
  - ABDOMINAL PAIN UPPER [None]
  - HEADACHE [None]
  - DYSPEPSIA [None]
  - EAR DISCOMFORT [None]
  - NAUSEA [None]
